FAERS Safety Report 8302300-1 (Version None)
Quarter: 2012Q2

REPORT INFORMATION
  Report Type: 
  Country: None (occurrence: None)
  Receive Date: 20120420
  Receipt Date: 20120412
  Transmission Date: 20120825
  Serious: Yes (Other)
  Sender: FDA-Public Use
  Company Number: DE-BAYER-2012-017188

PATIENT
  Age: 45 Year
  Sex: Female
  Weight: 45 kg

DRUGS (2)
  1. MIRENA [Suspect]
     Dosage: 20 MCG/24HR, CONT
     Route: 015
     Dates: start: 20010101, end: 20070101
  2. MIRENA [Suspect]
     Dosage: UNK
     Route: 015
     Dates: start: 20070101, end: 20111110

REACTIONS (26)
  - CARDIOVASCULAR DISORDER [None]
  - BLOOD GLUCOSE FLUCTUATION [None]
  - URINARY INCONTINENCE [None]
  - SLEEP DISORDER [None]
  - MOOD SWINGS [None]
  - AMENORRHOEA [None]
  - CIRCULATORY COLLAPSE [None]
  - HYPOGLYCAEMIA [None]
  - DIZZINESS [None]
  - MUSCLE TIGHTNESS [None]
  - OESTROGEN DEFICIENCY [None]
  - NAUSEA [None]
  - MENOPAUSAL SYMPTOMS [None]
  - HEPATIC FUNCTION ABNORMAL [None]
  - BONE PAIN [None]
  - CRYING [None]
  - FEAR [None]
  - STRESS [None]
  - MIGRAINE [None]
  - PROGESTERONE DECREASED [None]
  - GASTRIC DISORDER [None]
  - HEADACHE [None]
  - RENAL IMPAIRMENT [None]
  - ANXIETY [None]
  - PRURITUS [None]
  - GENERAL PHYSICAL HEALTH DETERIORATION [None]
